FAERS Safety Report 7242091-9 (Version None)
Quarter: 2011Q1

REPORT INFORMATION
  Report Type: 
  Country: None (occurrence: None)
  Receive Date: 20110124
  Receipt Date: 20110119
  Transmission Date: 20110831
  Serious: Yes (Other)
  Sender: FDA-Public Use
  Company Number: CA-PFIZER INC-2011014293

PATIENT
  Sex: Male

DRUGS (1)
  1. CHAMPIX [Suspect]
     Dosage: 1 MG, 2X/DAY
     Route: 048
     Dates: start: 20110107

REACTIONS (4)
  - SLEEP PARALYSIS [None]
  - SLEEP APNOEA SYNDROME [None]
  - DYSPNOEA [None]
  - THROAT TIGHTNESS [None]
